FAERS Safety Report 9375341 (Version 1)
Quarter: 2013Q2

REPORT INFORMATION
  Report Type: Other
  Country: JP (occurrence: JP)
  Receive Date: 20130628
  Receipt Date: 20130628
  Transmission Date: 20140414
  Serious: Yes (Other)
  Sender: FDA-Public Use
  Company Number: JP-BRISTOL-MYERS SQUIBB COMPANY-19057355

PATIENT
  Age: 57 Year
  Sex: Male

DRUGS (2)
  1. CARBOPLATIN [Suspect]
     Indication: LUNG NEOPLASM MALIGNANT
  2. PACLITAXEL [Suspect]
     Indication: LUNG NEOPLASM MALIGNANT

REACTIONS (1)
  - Pulmonary toxicity [Unknown]
